FAERS Safety Report 26048664 (Version 2)
Quarter: 2025Q4

REPORT INFORMATION
  Report Type: Report from Study
  Country: EU (occurrence: EU)
  Receive Date: 20251114
  Receipt Date: 20251118
  Transmission Date: 20260117
  Serious: Yes (Death, Other)
  Sender: ABBVIE
  Company Number: EU-JNJFOC-20251154867

PATIENT

DRUGS (2)
  1. IBRUTINIB [Suspect]
     Active Substance: IBRUTINIB
     Indication: Chronic lymphocytic leukaemia
     Dosage: 3 LEAD-IN CYCLES
     Route: 048
  2. VENETOCLAX [Suspect]
     Active Substance: VENETOCLAX
     Indication: Product used for unknown indication
     Dosage: FOR 12 CYCLES WITH THE STANDARD WEEKLY RAMP-UP (20-50-100-200-400MG)
     Route: 065

REACTIONS (18)
  - Lung neoplasm malignant [Fatal]
  - Atrial fibrillation [Unknown]
  - Febrile neutropenia [Unknown]
  - Toxicity to various agents [Unknown]
  - Neutropenia [Unknown]
  - Infection [Fatal]
  - Urinary tract infection [Unknown]
  - Acute generalised exanthematous pustulosis [Unknown]
  - Anaemia [Unknown]
  - Richter^s syndrome [Unknown]
  - Ventricular arrhythmia [Unknown]
  - Rash [Unknown]
  - Thrombocytopenia [Unknown]
  - Cardiac failure [Unknown]
  - Hypertension [Unknown]
  - Cerebrovascular accident [Unknown]
  - Tumour lysis syndrome [Unknown]
  - Diarrhoea [Unknown]
